FAERS Safety Report 4372800-8 (Version None)
Quarter: 2004Q2

REPORT INFORMATION
  Report Type: 
  Country: None (occurrence: None)
  Receive Date: 20040526
  Receipt Date: 20040325
  Transmission Date: 20050107
  Serious: Yes (Hospitalization)
  Sender: FDA-Public Use
  Company Number: BLOC000777

PATIENT
  Age: 4 Year
  Sex: Male

DRUGS (1)
  1. MYOBLOC [Suspect]
     Indication: CEREBRAL PALSY
     Dates: start: 20040312, end: 20040312

REACTIONS (8)
  - CHOKING [None]
  - COUGH [None]
  - EYELID DISORDER [None]
  - FATIGUE [None]
  - HYPERSOMNIA [None]
  - LIP DRY [None]
  - PARALYSIS [None]
  - SPEECH DISORDER [None]
